FAERS Safety Report 4312586-6 (Version None)
Quarter: 2004Q1

REPORT INFORMATION
  Report Type: 
  Country: None (occurrence: None)
  Receive Date: 20040303
  Receipt Date: 20040220
  Transmission Date: 20041129
  Serious: Yes (Other)
  Sender: FDA-Public Use
  Company Number: USA-2003-0005133

PATIENT
  Age: 34 Year
  Sex: Female
  Weight: 55.3 kg

DRUGS (13)
  1. OXYCONTIN [Suspect]
     Indication: PAIN
     Dosage: SEE TEXT
     Dates: start: 19960101, end: 20020101
  2. LORCET-HD [Concomitant]
  3. NAPROXEN SODIUM [Concomitant]
  4. DIPHENHYDRAMINE HCL [Concomitant]
  5. VALIUM [Concomitant]
  6. XANAX [Concomitant]
  7. RELAFEN [Concomitant]
  8. NORFLEX [Concomitant]
  9. ELAVIL [Concomitant]
  10. DESIPRAMINE HCL [Concomitant]
  11. SOMA [Concomitant]
  12. CARBATROL [Concomitant]
  13. PAMELOR [Concomitant]

REACTIONS (25)
  - ARTHRALGIA [None]
  - BACK PAIN [None]
  - CONDITION AGGRAVATED [None]
  - DEPENDENCE [None]
  - DEPRESSION [None]
  - DRUG EFFECT DECREASED [None]
  - DRUG WITHDRAWAL SYNDROME [None]
  - DYSPEPSIA [None]
  - FATIGUE [None]
  - GAIT DISTURBANCE [None]
  - GRAND MAL CONVULSION [None]
  - HEADACHE [None]
  - HYPERHIDROSIS [None]
  - INADEQUATE ANALGESIA [None]
  - INSOMNIA [None]
  - IRRITABILITY [None]
  - NAUSEA [None]
  - NECK PAIN [None]
  - NERVOUSNESS [None]
  - OEDEMA PERIPHERAL [None]
  - PAIN [None]
  - PAIN IN EXTREMITY [None]
  - TREMOR [None]
  - VOMITING [None]
  - WEIGHT DECREASED [None]
